FAERS Safety Report 7544907-5 (Version None)
Quarter: 2011Q2

REPORT INFORMATION
  Report Type: 
  Country: None (occurrence: None)
  Receive Date: 20110614
  Receipt Date: 20091009
  Transmission Date: 20111010
  Serious: Yes (Death, Other)
  Sender: FDA-Public Use
  Company Number: US-BAYER-2011-006435

PATIENT
  Age: 81 Year
  Sex: Female
  Weight: 76 kg

DRUGS (10)
  1. RED BLOOD CELLS [Concomitant]
     Dosage: 7 U, UNK
     Dates: start: 20040830
  2. FRESH FROZEN PLASMA [Concomitant]
     Dosage: 2 U, UNK
     Dates: start: 20040831
  3. HEPARIN [Concomitant]
     Dosage: UNK
     Route: 042
     Dates: start: 20040830
  4. RED BLOOD CELLS [Concomitant]
     Dosage: 4 U, UNK
     Dates: start: 20040831
  5. TRASYLOL [Suspect]
     Indication: AORTIC VALVE REPLACEMENT
     Dosage: TEST DOSE (200ML PUMP PRIME), LOADING DOSE (200CC, FOLLOWED BY ADDITIONAL 50CC)
     Route: 042
     Dates: start: 20040830, end: 20040830
  6. TRASYLOL [Suspect]
     Indication: CORONARY ARTERY BYPASS
  7. RED BLOOD CELLS [Concomitant]
     Dosage: 3 U, UNK
     Dates: start: 20040902
  8. DOBUTREX [Concomitant]
     Dosage: UNK
     Route: 042
     Dates: start: 20040830
  9. FRESH FROZEN PLASMA [Concomitant]
     Dosage: 8 U, UNK
     Dates: start: 20040830
  10. FENTANYL [Concomitant]
     Dosage: UNK
     Route: 042
     Dates: start: 20040830

REACTIONS (13)
  - RENAL FAILURE [None]
  - ANXIETY [None]
  - RENAL DISORDER [None]
  - FEAR [None]
  - MULTI-ORGAN FAILURE [None]
  - EMOTIONAL DISTRESS [None]
  - UNEVALUABLE EVENT [None]
  - RENAL IMPAIRMENT [None]
  - RENAL INJURY [None]
  - STRESS [None]
  - DEATH [None]
  - PAIN [None]
  - INJURY [None]
